FAERS Safety Report 8578904-8 (Version None)
Quarter: 2012Q3

REPORT INFORMATION
  Report Type: 
  Country: None (occurrence: None)
  Receive Date: 20120808
  Receipt Date: 20120725
  Transmission Date: 20120928
  Serious: Yes (Life-Threatening, Hospitalization, Disabling)
  Sender: FDA-Public Use
  Company Number: US-NOVOPROD-352502

PATIENT
  Age: 56 Year
  Sex: Male
  Weight: 136.87 kg

DRUGS (1)
  1. VICTOZA [Suspect]
     Indication: TYPE 2 DIABETES MELLITUS
     Dosage: 1.8 MG, QD
     Route: 058
     Dates: start: 20110929, end: 20120311

REACTIONS (1)
  - CARDIAC FAILURE CONGESTIVE [None]
